FAERS Safety Report 5123912-2 (Version None)
Quarter: 2006Q3

REPORT INFORMATION
  Report Type: 
  Country: None (occurrence: None)
  Receive Date: 20060811
  Receipt Date: 20060531
  Transmission Date: 20061208
  Serious: Yes (Other)
  Sender: FDA-Public Use
  Company Number: 200614776US

PATIENT
  Age: 70 Year
  Sex: Male

DRUGS (5)
  1. APIDRA [Suspect]
     Indication: DIABETES MELLITUS INSULIN-DEPENDENT
     Dosage: 15-20 U QD
     Dates: start: 20060101
  2. LATANOPROST (XALATAN) [Concomitant]
  3. EZETIMIBE (ZETIA /USA/) [Concomitant]
  4. DOXYCYCLINE [Concomitant]
  5. OMEPRAZOLE [Concomitant]

REACTIONS (2)
  - BLOOD GLUCOSE INCREASED [None]
  - HYPOGLYCAEMIA [None]
